FAERS Safety Report 9143546 (Version 1)
Quarter: 2013Q1

REPORT INFORMATION
  Report Type: Spontaneous
  Country: US (occurrence: US)
  Receive Date: 20130306
  Receipt Date: 20130306
  Transmission Date: 20140127
  Serious: No
  Sender: FDA-Public Use
  Company Number: US-VERTEX PHARMACEUTICALS INC.-2013-002959

PATIENT
  Age: 70 Year
  Sex: Male
  Weight: 104 kg

DRUGS (3)
  1. INCIVEK [Suspect]
     Indication: HEPATITIS C
     Dosage: 750 MG, TID
     Route: 048
     Dates: start: 20130205
  2. RIBAVIRIN [Suspect]
     Indication: HEPATITIS C
     Dosage: 800MG AM, 600MG PM
     Route: 048
     Dates: start: 20130205
  3. PEGASYS [Suspect]
     Indication: HEPATITIS C
     Dosage: 180 ?G, QW
     Route: 058
     Dates: start: 20130205

REACTIONS (4)
  - Anxiety [Not Recovered/Not Resolved]
  - Muscle tightness [Not Recovered/Not Resolved]
  - Insomnia [Not Recovered/Not Resolved]
  - Anorectal discomfort [Not Recovered/Not Resolved]
